FAERS Safety Report 8408431-X (Version None)
Quarter: 2012Q2

REPORT INFORMATION
  Report Type: 
  Country: None (occurrence: None)
  Receive Date: 20120323
  Receipt Date: 20111216
  Transmission Date: 20120825
  Serious: Yes (Hospitalization)
  Sender: FDA-Public Use
  Company Number: 163-21880-11122297

PATIENT
  Sex: Male

DRUGS (3)
  1. REVLIMID [Suspect]
     Indication: MYELODYSPLASTIC SYNDROME
     Dosage: 10 MG, DAILY X 21 DAYS, PO : 5 MG, 1 IN 1 D, PO : 10 MG, 1 IN 1 D, PO
     Route: 048
     Dates: start: 20081226
  2. REVLIMID [Suspect]
     Indication: MYELODYSPLASTIC SYNDROME
     Dosage: 10 MG, DAILY X 21 DAYS, PO : 5 MG, 1 IN 1 D, PO : 10 MG, 1 IN 1 D, PO
     Route: 048
     Dates: start: 20110401
  3. REVLIMID [Suspect]
     Indication: MYELODYSPLASTIC SYNDROME
     Dosage: 10 MG, DAILY X 21 DAYS, PO : 5 MG, 1 IN 1 D, PO : 10 MG, 1 IN 1 D, PO
     Route: 048
     Dates: start: 20110901

REACTIONS (1)
  - ASTHENIA [None]
